FAERS Safety Report 4404799-X (Version None)
Quarter: 2004Q3

REPORT INFORMATION
  Report Type: 
  Country: None (occurrence: None)
  Receive Date: 20040720
  Receipt Date: 20040707
  Transmission Date: 20050211
  Serious: Yes (Hospitalization, Other)
  Sender: FDA-Public Use
  Company Number: 061-0981-990619

PATIENT
  Age: 71 Year
  Sex: Male
  Weight: 103.5 kg

DRUGS (5)
  1. ATORVASTATIN CALCIUM [Suspect]
     Indication: HYPERLIPIDAEMIA
     Dosage: 10 MG (DAILY), ORAL
     Route: 048
     Dates: start: 19990705, end: 19990906
  2. ASPIRIN [Concomitant]
  3. VERAPARAMIL HYDROCHLORIDE (VERAPAMIL HYDROCHLORIDE) [Concomitant]
  4. ENALAPRIL MALEATE [Concomitant]
  5. INDOMETHACIN [Concomitant]

REACTIONS (15)
  - BENIGN NEOPLASM OF BLADDER [None]
  - BENIGN PROSTATIC HYPERPLASIA [None]
  - BLADDER CANCER RECURRENT [None]
  - BLADDER CANCER STAGE II [None]
  - BLOOD BILIRUBIN INCREASED [None]
  - BLOOD CHLORIDE DECREASED [None]
  - CHEST X-RAY ABNORMAL [None]
  - CHRONIC OBSTRUCTIVE AIRWAYS DISEASE [None]
  - CONSTIPATION [None]
  - ESCHERICHIA URINARY TRACT INFECTION [None]
  - FEELING ABNORMAL [None]
  - HAEMOGLOBIN INCREASED [None]
  - LOWER RESPIRATORY TRACT INFECTION [None]
  - PROSTATIC SPECIFIC ANTIGEN INCREASED [None]
  - URINARY TRACT INFECTION [None]
